FAERS Safety Report 11484602 (Version 1)
Quarter: 2015Q3

REPORT INFORMATION
  Report Type: Spontaneous
  Country: US (occurrence: US)
  Receive Date: 20150903
  Receipt Date: 20150903
  Transmission Date: 20151125
  Serious: No
  Sender: FDA-Public Use
  Company Number: US-ELI_LILLY_AND_COMPANY-US201208004881

PATIENT
  Age: 50 Year
  Sex: Female

DRUGS (3)
  1. CYMBALTA [Suspect]
     Active Substance: DULOXETINE HYDROCHLORIDE
     Indication: DEPRESSION
     Dosage: 20 MG, UNKNOWN
     Route: 048
     Dates: start: 2010
  2. CYMBALTA [Suspect]
     Active Substance: DULOXETINE HYDROCHLORIDE
     Dosage: 30 MG, UNKNOWN
     Route: 048
  3. CYMBALTA [Suspect]
     Active Substance: DULOXETINE HYDROCHLORIDE
     Dosage: 20 MG, SINGLE
     Route: 048
     Dates: start: 201111

REACTIONS (4)
  - Nausea [Unknown]
  - Headache [Unknown]
  - Intentional product misuse [Unknown]
  - Anxiety [Unknown]
